FAERS Safety Report 7330646-2 (Version None)
Quarter: 2011Q1

REPORT INFORMATION
  Report Type: 
  Country: None (occurrence: None)
  Receive Date: 20110304
  Receipt Date: 20110225
  Transmission Date: 20110831
  Serious: Yes (Other)
  Sender: FDA-Public Use
  Company Number: GB-TEVA-269121ISR

PATIENT
  Age: 77 Year
  Sex: Female
  Weight: 71 kg

DRUGS (1)
  1. METFORMIN [Suspect]
     Dates: start: 20110215

REACTIONS (1)
  - LIVER FUNCTION TEST ABNORMAL [None]
